FAERS Safety Report 11029427 (Version 1)
Quarter: 2015Q2

REPORT INFORMATION
  Report Type: Spontaneous
  Country: US (occurrence: US)
  Receive Date: 20150415
  Receipt Date: 20150415
  Transmission Date: 20150821
  Serious: No
  Sender: FDA-Public Use
  Company Number: US-ASTRAZENECA-2007BM12468

PATIENT
  Age: 46 Year
  Sex: Male
  Weight: 99.8 kg

DRUGS (4)
  1. BYDUREON [Suspect]
     Active Substance: EXENATIDE
     Indication: TYPE 2 DIABETES MELLITUS
     Route: 058
     Dates: start: 201401
  2. BYETTA [Suspect]
     Active Substance: EXENATIDE
     Route: 058
  3. BYDUREON [Suspect]
     Active Substance: EXENATIDE
     Indication: TYPE 2 DIABETES MELLITUS
     Route: 058
     Dates: start: 2015
  4. EXENATIDE [Suspect]
     Active Substance: EXENATIDE
     Dosage: 10UG PEN, FREQUENCY UNKNOWN, DISPOSABLE DEVICE
     Route: 065

REACTIONS (4)
  - Glycosylated haemoglobin increased [Unknown]
  - Intentional product misuse [Recovered/Resolved]
  - Injection site pain [Unknown]
  - Contusion [Unknown]

NARRATIVE: CASE EVENT DATE: 201409
